FAERS Safety Report 14407337 (Version 1)
Quarter: 2018Q1

REPORT INFORMATION
  Report Type: Spontaneous
  Country: US (occurrence: US)
  Receive Date: 20180116
  Receipt Date: 20180116
  Transmission Date: 20180509
  Serious: Yes (Other)
  Sender: FDA-Public Use
  Company Number: None

PATIENT

DRUGS (2)
  1. HYPERRHO [Suspect]
     Active Substance: HUMAN RHO(D) IMMUNE GLOBULIN
  2. HYPERRHO [Suspect]
     Active Substance: HUMAN RHO(D) IMMUNE GLOBULIN

REACTIONS (3)
  - Product label confusion [None]
  - Product storage error [None]
  - Product packaging confusion [None]

NARRATIVE: CASE EVENT DATE: 20180108
